FAERS Safety Report 9018157 (Version 1)
Quarter: 2013Q1

REPORT INFORMATION
  Report Type: Spontaneous
  Country: US (occurrence: None)
  Receive Date: 20130111
  Receipt Date: 20130111
  Transmission Date: 20140127
  Serious: Yes (Other)
  Sender: FDA-Public Use
  Company Number: None

PATIENT
  Sex: 0

DRUGS (1)
  1. COMPLERA [Suspect]
     Indication: HIV INFECTION
     Route: 048
     Dates: start: 20131201, end: 20130109

REACTIONS (9)
  - Paraesthesia [None]
  - Feeling cold [None]
  - Hyperhidrosis [None]
  - Pain in extremity [None]
  - Pain in extremity [None]
  - Limb discomfort [None]
  - Fatigue [None]
  - Abdominal distension [None]
  - Diarrhoea [None]
